FAERS Safety Report 8438014-7 (Version None)
Quarter: 2012Q2

REPORT INFORMATION
  Report Type: 
  Country: None (occurrence: None)
  Receive Date: 20120614
  Receipt Date: 20120604
  Transmission Date: 20120825
  Serious: No
  Sender: FDA-Public Use
  Company Number: US-AMGEN-USASP2012025772

PATIENT
  Age: 87 Year
  Sex: Female
  Weight: 45.805 kg

DRUGS (16)
  1. ASPIRIN [Concomitant]
     Dosage: 81 MG, QD
     Route: 048
  2. KLOR-CON [Concomitant]
     Dosage: 10 MEQ, TID
     Route: 048
     Dates: start: 20120429
  3. PROLIA [Suspect]
     Indication: OSTEOPOROSIS POSTMENOPAUSAL
     Dosage: 60 MG, ONE TIME DOSE
     Route: 030
     Dates: start: 20120319, end: 20120319
  4. LEVOTHYROXINE SODIUM [Concomitant]
     Dosage: 75 MUG, QD
     Route: 048
  5. PROTONIX [Concomitant]
     Dosage: 40 MG, BID
     Route: 048
  6. SIMVASTATIN [Concomitant]
     Dosage: 40 MG, PRN
     Route: 048
     Dates: start: 20111024
  7. MULTI-VITAMINS [Concomitant]
     Dosage: UNK UNK, QD
     Route: 048
  8. CITALOPRAM HYDROBROMIDE [Concomitant]
     Dosage: 40 MG, QD
     Route: 048
     Dates: start: 20120429
  9. FIBERCON [Concomitant]
     Dosage: UNK
  10. VITAMIN D [Concomitant]
     Dosage: 1000 IU, TID
     Route: 048
  11. CALCIUM + VIT D [Concomitant]
     Dosage: UNK UNK, BID
  12. DIOVAN [Concomitant]
     Dosage: 160 MG, QD
     Route: 048
  13. FUROSEMIDE [Concomitant]
     Dosage: 40 MG, PRN
     Route: 048
  14. WARFARIN SODIUM [Concomitant]
     Dosage: 2 MG, UNK
     Route: 048
     Dates: start: 20100122
  15. DONEPEZIL HCL [Concomitant]
     Dosage: 5 MG, QD
     Route: 048
     Dates: start: 20120125
  16. METOPROLOL SUCCINATE [Concomitant]
     Dosage: 50 MG, QD
     Route: 048
     Dates: start: 20101208

REACTIONS (3)
  - FOOT FRACTURE [None]
  - BRONCHITIS [None]
  - DENTAL CARIES [None]
